FAERS Safety Report 22609125 (Version 1)
Quarter: 2023Q2

REPORT INFORMATION
  Report Type: Spontaneous
  Country: US (occurrence: None)
  Receive Date: 20230615
  Receipt Date: 20230615
  Transmission Date: 20230722
  Serious: No
  Sender: FDA-Public Use
  Company Number: None

PATIENT
  Sex: Female

DRUGS (1)
  1. AVONEX PEN [Suspect]
     Active Substance: INTERFERON BETA-1A
     Indication: Multiple sclerosis
     Dosage: 30MCG  EVERY WEDNESDAY IM?
     Route: 030
     Dates: start: 20201106

REACTIONS (3)
  - Drug hypersensitivity [None]
  - Drug interaction [None]
  - Swollen tongue [None]
